FAERS Safety Report 19991995 (Version 2)
Quarter: 2021Q4

REPORT INFORMATION
  Report Type: Report from Study
  Country: US (occurrence: US)
  Receive Date: 20211025
  Receipt Date: 20211115
  Transmission Date: 20220303
  Serious: No
  Sender: FDA-Public Use
  Company Number: US-NOVARTISTESTPH-NVSC2021US241727

PATIENT
  Sex: Female

DRUGS (1)
  1. ENTRESTO [Suspect]
     Active Substance: SACUBITRIL\VALSARTAN
     Indication: Product used for unknown indication
     Dosage: 97 MG, BID (97/103MG)
     Route: 048

REACTIONS (4)
  - Nasopharyngitis [Unknown]
  - Cough [Unknown]
  - Sinus disorder [Unknown]
  - Hypersensitivity [Unknown]
